FAERS Safety Report 25150410 (Version 7)
Quarter: 2025Q4

REPORT INFORMATION
  Report Type: Spontaneous
  Country: CO (occurrence: CO)
  Receive Date: 20250402
  Receipt Date: 20251028
  Transmission Date: 20260118
  Serious: No
  Sender: PFIZER
  Company Number: CO-PFIZER INC-202500066846

PATIENT
  Age: 17 Year
  Sex: Male
  Weight: 56 kg

DRUGS (2)
  1. GENOTROPIN [Suspect]
     Active Substance: SOMATROPIN
     Indication: Growth disorder
     Dosage: 1.4 MG, 1X/DAY
  2. GENOTROPIN [Suspect]
     Active Substance: SOMATROPIN
     Indication: Short stature

REACTIONS (5)
  - Device use error [Unknown]
  - Device issue [Unknown]
  - Drug dose omission by device [Recovered/Resolved]
  - Device breakage [Unknown]
  - Off label use [Unknown]
